FAERS Safety Report 5352520-3 (Version None)
Quarter: 2007Q2

REPORT INFORMATION
  Report Type: 
  Country: None (occurrence: None)
  Receive Date: 20070611
  Receipt Date: 20070531
  Transmission Date: 20071010
  Serious: No
  Sender: FDA-Public Use
  Company Number: US-AMGEN-STX219736

PATIENT
  Sex: Female

DRUGS (1)
  1. ENBREL [Suspect]
     Indication: RHEUMATOID ARTHRITIS
     Route: 058
     Dates: start: 20000901

REACTIONS (4)
  - INGUINAL HERNIA [None]
  - SKIN SWELLING [None]
  - THYROID DISORDER [None]
  - WEIGHT DECREASED [None]
